FAERS Safety Report 5062786-5 (Version None)
Quarter: 2006Q3

REPORT INFORMATION
  Report Type: 
  Country: None (occurrence: None)
  Receive Date: 20060724
  Receipt Date: 20060724
  Transmission Date: 20061208
  Serious: Yes (Other)
  Sender: FDA-Public Use
  Company Number: None

PATIENT
  Age: 11 Year
  Sex: Female

DRUGS (4)
  1. COPPERTONE KIDS LOTION SPF 30 LOTION (CANADA) [Suspect]
     Indication: PROPHYLAXIS
     Dosage: TOPICAL
     Route: 061
  2. COPPERTONE KIDS LOTION SPF 30 LOTION (CANADA) [Suspect]
     Indication: SUNBURN
     Dosage: TOPICAL
     Route: 061
  3. COPPERTONE SPORT STICK SPF 30 [Suspect]
     Indication: PROPHYLAXIS
     Dosage: TOPICAL
     Route: 061
  4. COPPERTONE SPORT STICK SPF 30 [Suspect]
     Indication: SUNBURN
     Dosage: TOPICAL
     Route: 061

REACTIONS (1)
  - ANAPHYLACTIC REACTION [None]
